FAERS Safety Report 23555960 (Version 1)
Quarter: 2024Q1

REPORT INFORMATION
  Report Type: Spontaneous
  Country: JP (occurrence: JP)
  Receive Date: 20240222
  Receipt Date: 20240222
  Transmission Date: 20240410
  Serious: Yes (Death, Other)
  Sender: FDA-Public Use
  Company Number: JP-HEXAL-SDZ2023JP008848AA

PATIENT
  Age: 83 Year
  Sex: Female
  Weight: 46.1 kg

DRUGS (4)
  1. CYCLOSPORINE [Suspect]
     Active Substance: CYCLOSPORINE
     Dosage: 150 MG, BID
     Route: 048
     Dates: start: 20230725, end: 20230726
  2. CYCLOSPORINE [Suspect]
     Active Substance: CYCLOSPORINE
     Indication: Aplastic anaemia
     Dosage: 250 MG
     Route: 048
     Dates: start: 20230719, end: 20230724
  3. CANDESARTAN [Concomitant]
     Active Substance: CANDESARTAN
     Indication: Product used for unknown indication
     Dosage: 8 MG, QD
     Route: 048
     Dates: start: 20230710, end: 20230728
  4. ELTROMBOPAG OLAMINE [Concomitant]
     Active Substance: ELTROMBOPAG OLAMINE
     Indication: Aplastic anaemia
     Dosage: 75 MG, QD
     Route: 048
     Dates: start: 20230719, end: 20230726

REACTIONS (2)
  - Hepatitis fulminant [Fatal]
  - Hepatic failure [Fatal]

NARRATIVE: CASE EVENT DATE: 20230727
